FAERS Safety Report 5123616-6 (Version None)
Quarter: 2006Q4

REPORT INFORMATION
  Report Type: 
  Country: None (occurrence: None)
  Receive Date: 20060910
  Receipt Date: 20060222
  Transmission Date: 20070319
  Serious: Yes (Hospitalization, Other)
  Sender: FDA-Public Use
  Company Number: US200602004597

PATIENT
  Age: 66 Year
  Sex: Female

DRUGS (2)
  1. INSULIN, ANIMAL(INSULIN, ANIMAL) VIAL [Suspect]
     Indication: DIABETES MELLITUS
     Dosage: 5 U
  2. INSULIN, ANIMAL(INSULIN, ANIMAL) VIAL [Suspect]
     Indication: DIABETES MELLITUS
     Dosage: 26 U

REACTIONS (5)
  - BLOOD GLUCOSE DECREASED [None]
  - BLOOD GLUCOSE INCREASED [None]
  - INFLUENZA [None]
  - LOSS OF CONSCIOUSNESS [None]
  - SHOCK HYPOGLYCAEMIC [None]
